FAERS Safety Report 18941972 (Version 1)
Quarter: 2021Q1

REPORT INFORMATION
  Report Type: Spontaneous
  Country: GB (occurrence: GB)
  Receive Date: 20210225
  Receipt Date: 20210225
  Transmission Date: 20210420
  Serious: Yes (Other)
  Sender: FDA-Public Use
  Company Number: NVSC2021GB041399

PATIENT
  Sex: Female

DRUGS (2)
  1. ENGERIX?B [Suspect]
     Active Substance: HEPATITIS B VIRUS SUBTYPE ADW2 HBSAG SURFACE PROTEIN ANTIGEN
     Indication: PROPHYLAXIS
     Route: 065
  2. AMOXICILLIN. [Suspect]
     Active Substance: AMOXICILLIN
     Indication: PRODUCT USED FOR UNKNOWN INDICATION
     Route: 065

REACTIONS (3)
  - Stevens-Johnson syndrome [Unknown]
  - Rash [Unknown]
  - Vasculitis [Unknown]
